FAERS Safety Report 15532743 (Version 1)
Quarter: 2018Q4

REPORT INFORMATION
  Report Type: Spontaneous
  Country: US (occurrence: US)
  Receive Date: 20181019
  Receipt Date: 20181019
  Transmission Date: 20190205
  Serious: No
  Sender: FDA-Public Use
  Company Number: US-AMGEN-USASP2018145585

PATIENT
  Age: 50 Year
  Sex: Female
  Weight: 158 kg

DRUGS (1)
  1. AIMOVIG [Suspect]
     Active Substance: ERENUMAB-AOOE
     Indication: MIGRAINE
     Dosage: 70 MG, QMO
     Route: 058
     Dates: start: 20180811

REACTIONS (4)
  - Feeling hot [Unknown]
  - Rash pruritic [Unknown]
  - Swelling [Unknown]
  - Rash [Unknown]

NARRATIVE: CASE EVENT DATE: 20181011
